FAERS Safety Report 15322456 (Version 1)
Quarter: 2018Q3

REPORT INFORMATION
  Report Type: Report from Study
  Country: CA (occurrence: CA)
  Receive Date: 20180827
  Receipt Date: 20180827
  Transmission Date: 20181010
  Serious: Yes (Hospitalization, Other)
  Sender: FDA-Public Use
  Company Number: CA-JNJFOC-20180817759

PATIENT
  Age: 60 Year
  Sex: Female
  Weight: 67.13 kg

DRUGS (3)
  1. STELARA [Suspect]
     Active Substance: USTEKINUMAB
     Indication: CROHN^S DISEASE
     Dosage: STRENGTH = 90 MG
     Route: 058
     Dates: start: 20180618
  2. IMODIUM [Suspect]
     Active Substance: LOPERAMIDE HYDROCHLORIDE
     Indication: CROHN^S DISEASE
     Route: 065
  3. CODEINE [Suspect]
     Active Substance: CODEINE
     Indication: CROHN^S DISEASE
     Route: 065

REACTIONS (3)
  - Drug prescribing error [Recovering/Resolving]
  - Crohn^s disease [Unknown]
  - Hepatic failure [Recovering/Resolving]

NARRATIVE: CASE EVENT DATE: 2018
